FAERS Safety Report 24199896 (Version 7)
Quarter: 2025Q1

REPORT INFORMATION
  Report Type: Spontaneous
  Country: CA (occurrence: CA)
  Receive Date: 20240812
  Receipt Date: 20250310
  Transmission Date: 20250409
  Serious: Yes (Other)
  Sender: PFIZER
  Company Number: CA-PFIZER INC-202300008100

PATIENT
  Age: 66 Year
  Sex: Male
  Weight: 134 kg

DRUGS (29)
  1. RUXIENCE [Suspect]
     Active Substance: RITUXIMAB-PVVR
     Indication: Granulomatosis with polyangiitis
     Route: 042
     Dates: start: 20230201, end: 20230201
  2. RUXIENCE [Suspect]
     Active Substance: RITUXIMAB-PVVR
     Route: 042
     Dates: start: 20230214
  3. RUXIENCE [Suspect]
     Active Substance: RITUXIMAB-PVVR
     Route: 042
     Dates: start: 20230808, end: 20230808
  4. RUXIENCE [Suspect]
     Active Substance: RITUXIMAB-PVVR
     Route: 042
     Dates: start: 20240214, end: 20240214
  5. RUXIENCE [Suspect]
     Active Substance: RITUXIMAB-PVVR
     Route: 042
     Dates: start: 20240828
  6. RUXIENCE [Suspect]
     Active Substance: RITUXIMAB-PVVR
     Route: 042
     Dates: start: 20250228
  7. ALA [PARAFFIN] [Concomitant]
  8. AMLODIPINE [Concomitant]
     Active Substance: AMLODIPINE BESYLATE
  9. ATORVASTATIN [Concomitant]
     Active Substance: ATORVASTATIN
  10. CALCIUM [Concomitant]
     Active Substance: CALCIUM
  11. ELIQUIS [Concomitant]
     Active Substance: APIXABAN
  12. FOLIC ACID [Concomitant]
     Active Substance: FOLIC ACID
  13. GLICLAZIDE [Concomitant]
     Active Substance: GLICLAZIDE
  14. GLUCOSAMINE [Concomitant]
     Active Substance: GLUCOSAMINE
  15. GRAPE SEED EXTRACT [VITIS VINIFERA SEED] [Concomitant]
  16. JARDIANCE [Concomitant]
     Active Substance: EMPAGLIFLOZIN
  17. MAGNESIUM [Concomitant]
     Active Substance: MAGNESIUM
  18. METFORMIN [Concomitant]
     Active Substance: METFORMIN HYDROCHLORIDE
  19. METHOTREXATE [Concomitant]
     Active Substance: METHOTREXATE
     Dates: start: 202212
  20. METHOTREXATE [Concomitant]
     Active Substance: METHOTREXATE
  21. OMEGA-3 FATTY ACIDS [Concomitant]
     Active Substance: OMEGA-3 FATTY ACIDS
  22. OZEMPIC [Concomitant]
     Active Substance: SEMAGLUTIDE
  23. PANTOPRAZOLE SODIUM [Concomitant]
     Active Substance: PANTOPRAZOLE SODIUM
  24. BIFIDOBACTERIUM SPP.\LACTOBACILLUS ACIDOPHILUS [Concomitant]
     Active Substance: BIFIDOBACTERIUM SPP.\LACTOBACILLUS ACIDOPHILUS
  25. RAMIPRIL [Concomitant]
     Active Substance: RAMIPRIL
  26. VITAMIN B COMPLEX [Concomitant]
     Active Substance: CYANOCOBALAMIN\DEXPANTHENOL\NIACINAMIDE\PYRIDOXINE HYDROCHLORIDE\RIBOFLAVIN 5^-PHOSPHATE SODIUM\THIA
  27. CHOLECALCIFEROL [Concomitant]
     Active Substance: CHOLECALCIFEROL
  28. ZINC [Concomitant]
     Active Substance: ZINC
  29. HERBALS\TURMERIC [Concomitant]
     Active Substance: HERBALS\TURMERIC

REACTIONS (7)
  - Knee arthroplasty [Recovering/Resolving]
  - Post procedural swelling [Unknown]
  - Joint swelling [Unknown]
  - Pain [Unknown]
  - Off label use [Unknown]
  - Intentional product use issue [Unknown]
  - Product use issue [Unknown]

NARRATIVE: CASE EVENT DATE: 20230201
